FAERS Safety Report 17282397 (Version 1)
Quarter: 2020Q1

REPORT INFORMATION
  Report Type: Spontaneous
  Country: US (occurrence: US)
  Receive Date: 20191230
  Receipt Date: 20191230
  Transmission Date: 20200409
  Serious: Yes (Hospitalization)
  Sender: FDA-Public Use
  Company Number: None

PATIENT
  Sex: Female

DRUGS (10)
  1. INCRUSE ELPT [Concomitant]
  2. MULTI VITAMI/D3 [Concomitant]
  3. PRANCREAZE [Concomitant]
  4. TRIKAFTA [Suspect]
     Active Substance: ELEXACAFTOR\IVACAFTOR\TEZACAFTOR
     Indication: INFECTIVE PULMONARY EXACERBATION OF CYSTIC FIBROSIS
     Dosage: ?          OTHER DOSE:2 TABS-1 TAB QAM-Q;?
     Route: 048
     Dates: start: 20191109
  5. OMEPRAZOLE. [Concomitant]
     Active Substance: OMEPRAZOLE
  6. MONETLUKAST [Concomitant]
  7. AZITHROMYCIN ANHYDROUS. [Concomitant]
     Active Substance: AZITHROMYCIN ANHYDROUS
  8. COLACE [Concomitant]
     Active Substance: DOCUSATE SODIUM
  9. AMITIZA [Concomitant]
     Active Substance: LUBIPROSTONE
  10. BUDESONIDE. [Concomitant]
     Active Substance: BUDESONIDE

REACTIONS (2)
  - Chest pain [None]
  - Memory impairment [None]
